FAERS Safety Report 18916371 (Version 1)
Quarter: 2021Q1

REPORT INFORMATION
  Report Type: Spontaneous
  Country: US (occurrence: US)
  Receive Date: 20210219
  Receipt Date: 20210219
  Transmission Date: 20210420
  Serious: No
  Sender: FDA-Public Use
  Company Number: US-BIOVITRUM-2021US0538

PATIENT
  Age: 32 Year
  Sex: Female

DRUGS (1)
  1. KINERET [Suspect]
     Active Substance: ANAKINRA
     Indication: FIBROMYALGIA
     Route: 065

REACTIONS (5)
  - Herpes zoster [Unknown]
  - Off label use [Recovered/Resolved]
  - Nausea [Unknown]
  - Skin reaction [Unknown]
  - Injection site pain [Unknown]

NARRATIVE: CASE EVENT DATE: 202008
